FAERS Safety Report 4768077-1 (Version None)
Quarter: 2005Q3

REPORT INFORMATION
  Report Type: 
  Country: None (occurrence: None)
  Receive Date: 20050912
  Receipt Date: 20050912
  Transmission Date: 20060218
  Serious: Yes (Life-Threatening, Hospitalization)
  Sender: FDA-Public Use
  Company Number: None

PATIENT
  Age: 54 Year
  Sex: Male
  Weight: 75.1 kg

DRUGS (2)
  1. LEVOFLOXACIN [Suspect]
     Indication: INFECTION
     Dosage: 500MG, 250MG   TD, Q24   INTRA CORP
     Dates: start: 20050816, end: 20050831
  2. LEVOFLOXACIN [Suspect]
     Indication: SEPSIS
     Dosage: 500MG, 250MG   TD, Q24   INTRA CORP
     Dates: start: 20050816, end: 20050831

REACTIONS (5)
  - CARDIAC ARREST [None]
  - DIALYSIS [None]
  - ELECTROCARDIOGRAM QT PROLONGED [None]
  - PROCEDURAL COMPLICATION [None]
  - VENTRICULAR FIBRILLATION [None]
